FAERS Safety Report 13177394 (Version 1)
Quarter: 2017Q1

REPORT INFORMATION
  Report Type: Report from Study
  Country: US (occurrence: US)
  Receive Date: 20170201
  Receipt Date: 20170201
  Transmission Date: 20170428
  Serious: No
  Sender: FDA-Public Use
  Company Number: US-EXELIXIS-CABO-16006049

PATIENT
  Age: 45 Year
  Sex: Female

DRUGS (1)
  1. COMETRIQ [Suspect]
     Active Substance: CABOZANTINIB S-MALATE
     Indication: RENAL CANCER
     Dosage: 60 MG, QD
     Route: 048
     Dates: start: 20160210

REACTIONS (14)
  - Nausea [Not Recovered/Not Resolved]
  - Dizziness [Not Recovered/Not Resolved]
  - Drug administration error [Unknown]
  - Dry throat [Unknown]
  - Diarrhoea [Not Recovered/Not Resolved]
  - Dry skin [Not Recovered/Not Resolved]
  - Paraesthesia [Unknown]
  - Off label use [Unknown]
  - Dysphagia [Unknown]
  - Cough [Not Recovered/Not Resolved]
  - Haemoptysis [Unknown]
  - Hair colour changes [Unknown]
  - Oropharyngeal pain [Unknown]
  - Fatigue [Unknown]

NARRATIVE: CASE EVENT DATE: 20160210
